FAERS Safety Report 15666415 (Version 1)
Quarter: 2018Q4

REPORT INFORMATION
  Report Type: Other
  Country: FI (occurrence: FI)
  Receive Date: 20181128
  Receipt Date: 20181128
  Transmission Date: 20190205
  Serious: Yes (Disabling)
  Sender: FDA-Public Use
  Company Number: FI-MARINA BIOTECH, INC.-2018MARINA000530

PATIENT

DRUGS (1)
  1. COVERAM [Suspect]
     Active Substance: AMLODIPINE\PERINDOPRIL
     Indication: BLOOD PRESSURE ABNORMAL
     Dosage: UNK
     Route: 065

REACTIONS (4)
  - Haemorrhoids [Recovered/Resolved with Sequelae]
  - Rash [Recovered/Resolved with Sequelae]
  - Dental restoration failure [Recovered/Resolved with Sequelae]
  - Sudden hearing loss [Recovered/Resolved with Sequelae]

NARRATIVE: CASE EVENT DATE: 201603
